FAERS Safety Report 4981349-0 (Version None)
Quarter: 2006Q2

REPORT INFORMATION
  Report Type: 
  Country: None (occurrence: None)
  Receive Date: 20060424
  Receipt Date: 20050930
  Transmission Date: 20061013
  Serious: Yes (Hospitalization, Disabling)
  Sender: FDA-Public Use
  Company Number: US-MERCK-0510USA02027

PATIENT
  Age: 58 Year
  Sex: Male
  Weight: 82 kg

DRUGS (6)
  1. VIOXX [Suspect]
     Indication: OSTEOARTHRITIS
     Route: 048
     Dates: start: 20000101, end: 20020329
  2. VIOXX [Suspect]
     Indication: ARTHRALGIA
     Route: 048
     Dates: start: 20000101, end: 20020329
  3. BISOPROLOL [Concomitant]
     Indication: HYPERTENSION
     Route: 065
  4. NITROSTAT [Concomitant]
     Indication: ANGINA PECTORIS
     Route: 065
  5. NITROSTAT [Concomitant]
     Indication: CHEST PAIN
     Route: 065
  6. LIPITOR [Concomitant]
     Route: 065

REACTIONS (11)
  - ANXIETY [None]
  - ARTERIOSCLEROSIS CORONARY ARTERY [None]
  - ARTHRITIS INFECTIVE [None]
  - ARTHROPATHY [None]
  - BLOOD CHOLESTEROL INCREASED [None]
  - BODY TEMPERATURE INCREASED [None]
  - HYPERLIPIDAEMIA [None]
  - HYPERTENSION [None]
  - MYOCARDIAL INFARCTION [None]
  - SINUS TACHYCARDIA [None]
  - STRESS [None]
